FAERS Safety Report 12290837 (Version 1)
Quarter: 2016Q2

REPORT INFORMATION
  Report Type: Spontaneous
  Country: US (occurrence: US)
  Receive Date: 20160421
  Receipt Date: 20160421
  Transmission Date: 20160815
  Serious: Yes (Other)
  Sender: FDA-Public Use
  Company Number: US-MDT-ADR-2016-00250

PATIENT
  Age: 32 Year
  Sex: Male

DRUGS (1)
  1. LIORESAL [Suspect]
     Active Substance: BACLOFEN
     Route: 037

REACTIONS (4)
  - Headache [None]
  - Muscle tightness [None]
  - Hypoaesthesia [None]
  - Paraesthesia [None]

NARRATIVE: CASE EVENT DATE: 20160204
